FAERS Safety Report 5289491-4 (Version None)
Quarter: 2007Q2

REPORT INFORMATION
  Report Type: 
  Country: None (occurrence: None)
  Receive Date: 20070402
  Receipt Date: 20070323
  Transmission Date: 20071010
  Serious: Yes (Other)
  Sender: FDA-Public Use
  Company Number: 163-21880-07020045

PATIENT
  Age: 69 Year
  Sex: Female

DRUGS (15)
  1. REVLIMID [Suspect]
     Indication: MULTIPLE MYELOMA
     Dosage: 25 MG, DAILY FOR 21 DAYS, THEN OFF 7 DAYS, ORAL
     Route: 048
     Dates: start: 20061001, end: 20070201
  2. DEXAMETHASONE [Suspect]
     Indication: MULTIPLE MYELOMA
     Dosage: DAILY FOR 4 DAYS, REPEAT 4 DAY COURSE AS, ORAL
     Route: 048
  3. ALBUTEROL MDI (SALBUTAMOL) (90 MICROGRAM) [Concomitant]
  4. ALBUTEROL SULFATE (SALBUTAMOL SULFATE) (SOLUTION) [Concomitant]
  5. ALPRAZOLAM (ALPRAZOLAM) (TABLETS) [Concomitant]
  6. ASPIRIN [Concomitant]
  7. TUSSIONEX (TUSSIONEX PENNKINETIC) (SUSPENSION) [Concomitant]
  8. LEXAPRO (ESCITALOPRAM OXALATE) (TABLETS) [Concomitant]
  9. FAMOTIDINE (FAMOTIDINE) (TABLETS) [Concomitant]
  10. FUROSEMIDE [Concomitant]
  11. GLYBURIDE [Concomitant]
  12. LEVAQUIN [Concomitant]
  13. POTASSIUM CHLORIDE [Concomitant]
  14. AVANDIA [Concomitant]
  15. VERAPAMIL (VERAPAMIL) (TABLETS) [Concomitant]

REACTIONS (5)
  - EYE DISORDER [None]
  - OCULAR VASCULAR DISORDER [None]
  - THROMBOSIS [None]
  - VASCULAR OCCLUSION [None]
  - VISION BLURRED [None]
